FAERS Safety Report 13641189 (Version 2)
Quarter: 2018Q3

REPORT INFORMATION
  Report Type: Spontaneous
  Country: US (occurrence: US)
  Receive Date: 20170612
  Receipt Date: 20180803
  Transmission Date: 20181010
  Serious: Yes (Other)
  Sender: FDA-Public Use
  Company Number: US-SUN PHARMACEUTICAL INDUSTRIES LTD-2015US-108073

PATIENT
  Sex: Male

DRUGS (3)
  1. FLUTICASONE. [Concomitant]
     Active Substance: FLUTICASONE
     Indication: ASTHMA
     Dosage: UNK
     Route: 055
  2. ASPIRIN. [Suspect]
     Active Substance: ASPIRIN
     Indication: PRODUCT USED FOR UNKNOWN INDICATION
     Route: 065
  3. SALMETEROL [Concomitant]
     Active Substance: SALMETEROL
     Indication: ASTHMA
     Dosage: UNK
     Route: 055

REACTIONS (1)
  - Aspirin-exacerbated respiratory disease [Recovered/Resolved]
